FAERS Safety Report 6183163-X (Version None)
Quarter: 2009Q2

REPORT INFORMATION
  Report Type: 
  Country: None (occurrence: None)
  Receive Date: 20090507
  Receipt Date: 20090504
  Transmission Date: 20091009
  Serious: Yes (Other)
  Sender: FDA-Public Use
  Company Number: US-JNJFOC-20080906335

PATIENT
  Sex: Female
  Weight: 97.52 kg

DRUGS (11)
  1. LEVAQUIN [Suspect]
     Indication: PNEUMONIA
     Route: 048
  2. LEVAQUIN [Suspect]
     Indication: BRONCHITIS
     Route: 048
  3. LEVAQUIN [Suspect]
     Indication: SINUSITIS
     Route: 048
  4. LEVAQUIN [Suspect]
     Indication: UPPER RESPIRATORY TRACT INFECTION
     Route: 048
  5. ENBREL [Concomitant]
     Indication: PSORIASIS
     Route: 065
  6. ENBREL [Concomitant]
     Indication: RHEUMATOID ARTHRITIS
     Route: 065
  7. RIDAURA [Concomitant]
     Indication: PSORIASIS
     Route: 065
  8. RIDAURA [Concomitant]
     Indication: RHEUMATOID ARTHRITIS
     Route: 065
  9. RELAFEN [Concomitant]
     Indication: ARTHRALGIA
     Route: 065
  10. DIOVAN [Concomitant]
     Indication: BLOOD PRESSURE
     Route: 065
  11. CYTOTEC [Concomitant]
     Indication: GASTROINTESTINAL DISORDER THERAPY
     Route: 065

REACTIONS (3)
  - ARTHRALGIA [None]
  - LIGAMENT RUPTURE [None]
  - MUSCULOSKELETAL STIFFNESS [None]
